FAERS Safety Report 18648281 (Version 1)
Quarter: 2020Q4

REPORT INFORMATION
  Report Type: Spontaneous
  Country: US (occurrence: US)
  Receive Date: 20201221
  Receipt Date: 20201221
  Transmission Date: 20210114
  Serious: Yes (Life-Threatening, Hospitalization, Disabling, Other)
  Sender: FDA-Public Use
  Company Number: None

PATIENT
  Age: 28 Year
  Sex: Male
  Weight: 130.5 kg

DRUGS (3)
  1. MELATONIN [Concomitant]
     Active Substance: MELATONIN
  2. DIVALPROEX SOD ER 500MG TAB [Suspect]
     Active Substance: DIVALPROEX SODIUM
     Indication: SEIZURE
     Dosage: ?          QUANTITY:2 TABLET(S);?
     Route: 048
  3. DIVALPROEX SOD ER 500MG TAB [Suspect]
     Active Substance: DIVALPROEX SODIUM
     Indication: MIGRAINE
     Dosage: ?          QUANTITY:2 TABLET(S);?
     Route: 048

REACTIONS (10)
  - Testicular disorder [None]
  - Memory impairment [None]
  - Sperm concentration decreased [None]
  - Tremor [None]
  - Motor dysfunction [None]
  - Dizziness [None]
  - Pruritus [None]
  - Depression [None]
  - Negative thoughts [None]
  - Hallucination [None]
